FAERS Safety Report 5703687-6 (Version None)
Quarter: 2008Q2

REPORT INFORMATION
  Report Type: 
  Country: None (occurrence: None)
  Receive Date: 20080413
  Receipt Date: 20080404
  Transmission Date: 20081010
  Serious: Yes (Hospitalization)
  Sender: FDA-Public Use
  Company Number: PHHO2007CH13678

PATIENT
  Age: 35 Year
  Sex: Female
  Weight: 51 kg

DRUGS (2)
  1. MYFORTIC VS EVEROLIMUS [Suspect]
     Indication: LUNG TRANSPLANT
     Dosage: 360 MG 2 X 4
     Route: 048
  2. MYFORTIC VS EVEROLIMUS [Suspect]
     Dosage: 1800 MG
     Route: 048
     Dates: start: 20070305, end: 20070816

REACTIONS (3)
  - C-REACTIVE PROTEIN INCREASED [None]
  - PULMONARY FUNCTION TEST DECREASED [None]
  - RESPIRATORY TRACT INFECTION [None]
